FAERS Safety Report 5365610-6 (Version None)
Quarter: 2007Q2

REPORT INFORMATION
  Report Type: 
  Country: None (occurrence: None)
  Receive Date: 20070621
  Receipt Date: 20070612
  Transmission Date: 20071010
  Serious: Yes (Life-Threatening, Other)
  Sender: FDA-Public Use
  Company Number: FR-BRISTOL-MYERS SQUIBB COMPANY-13820832

PATIENT
  Age: 70 Year
  Sex: Male

DRUGS (12)
  1. ENDOXAN [Suspect]
     Indication: LYMPHOMA
     Route: 042
     Dates: start: 20020607, end: 20031030
  2. ETOPOSIDE [Suspect]
     Indication: LYMPHOMA
     Route: 042
     Dates: start: 20020607, end: 20031030
  3. DOXORUBICIN HCL [Suspect]
     Indication: LYMPHOMA
     Route: 042
     Dates: start: 20020607, end: 20031030
  4. FLUDARA [Suspect]
     Indication: LYMPHOMA
     Route: 048
     Dates: start: 20060705, end: 20070128
  5. MABTHERA [Suspect]
     Indication: LYMPHOMA
     Route: 042
     Dates: start: 20060705, end: 20070125
  6. PEGINTERFERON ALFA-2B [Suspect]
     Indication: LYMPHOMA
     Route: 058
     Dates: start: 20020607, end: 20031030
  7. DIAMICRON [Concomitant]
  8. STAGID [Concomitant]
  9. TICLID [Concomitant]
  10. FONZYLANE [Concomitant]
  11. IRBESARTAN [Concomitant]
  12. PREDNISOLONE [Concomitant]

REACTIONS (2)
  - MALIGNANT NEOPLASM PROGRESSION [None]
  - TRANSITIONAL CELL CARCINOMA [None]
